FAERS Safety Report 21679081 (Version 1)
Quarter: 2022Q4

REPORT INFORMATION
  Report Type: Report from Study
  Country: CA (occurrence: CA)
  Receive Date: 20221204
  Receipt Date: 20221204
  Transmission Date: 20230112
  Serious: Yes (Other)
  Sender: FDA-Public Use
  Company Number: CA-ABBVIE-22K-028-4528469-00

PATIENT
  Age: 75 Year
  Sex: Male

DRUGS (5)
  1. RINVOQ [Suspect]
     Active Substance: UPADACITINIB
     Indication: Rheumatoid arthritis
     Dosage: FORM STRENGTH 15 MILLIGRAM?LAST ADMINISTRATION DATE WAS MAY 2022
     Route: 048
     Dates: start: 20201111
  2. RINVOQ [Suspect]
     Active Substance: UPADACITINIB
     Indication: Rheumatoid arthritis
     Dosage: FORM STRENGTH 15 MILLIGRAM?LAST ADMINISTRATION DATE WAS 2022
     Route: 048
     Dates: start: 202209
  3. RINVOQ [Suspect]
     Active Substance: UPADACITINIB
     Indication: Rheumatoid arthritis
     Dosage: FORM STRENGTH 15 MILLIGRAM
     Route: 048
     Dates: start: 202211
  4. IODINE [Suspect]
     Active Substance: IODINE
     Indication: Product used for unknown indication
     Route: 065
  5. RUPATADINE FUMARATE [Concomitant]
     Active Substance: RUPATADINE FUMARATE
     Indication: Product used for unknown indication

REACTIONS (8)
  - Intestinal polyp [Unknown]
  - Dry throat [Unknown]
  - Adverse reaction [Unknown]
  - Pruritus [Not Recovered/Not Resolved]
  - SARS-CoV-2 test positive [Unknown]
  - Gastric disorder [Unknown]
  - Speech disorder [Unknown]
  - Weight decreased [Unknown]

NARRATIVE: CASE EVENT DATE: 20221021
